FAERS Safety Report 6260033-X (Version None)
Quarter: 2009Q3

REPORT INFORMATION
  Report Type: 
  Country: None (occurrence: None)
  Receive Date: 20090708
  Receipt Date: 20090625
  Transmission Date: 20100115
  Serious: Yes (Other)
  Sender: FDA-Public Use
  Company Number: US-ELI_LILLY_AND_COMPANY-US200905004501

PATIENT
  Sex: Male
  Weight: 82.54 kg

DRUGS (4)
  1. CYMBALTA [Suspect]
     Indication: DEPRESSION
     Dosage: 30 MG, UNK
     Dates: start: 20090220, end: 20090227
  2. CYMBALTA [Suspect]
     Dosage: 60 MG, UNK
     Dates: start: 20090227, end: 20090519
  3. ALLEGRA [Concomitant]
     Indication: SEASONAL ALLERGY
     Dosage: 180 MG, DAILY (1/D)
     Dates: start: 20070413
  4. FLONASE [Concomitant]
     Indication: SEASONAL ALLERGY
     Dosage: 50 UG, UNK
     Dates: start: 20070413

REACTIONS (3)
  - ALANINE AMINOTRANSFERASE INCREASED [None]
  - ASPARTATE AMINOTRANSFERASE INCREASED [None]
  - BLOOD BILIRUBIN INCREASED [None]
